FAERS Safety Report 21742285 (Version 1)
Quarter: 2022Q4

REPORT INFORMATION
  Report Type: Spontaneous
  Country: US (occurrence: None)
  Receive Date: 20221216
  Receipt Date: 20221216
  Transmission Date: 20230113
  Serious: Yes (Death)
  Sender: FDA-Public Use
  Company Number: None

PATIENT
  Age: 86 Year
  Sex: Male

DRUGS (1)
  1. ZYTIGA [Suspect]
     Active Substance: ABIRATERONE ACETATE
     Indication: Prostate cancer
     Dosage: FREQUENCY : DAILY;?
     Route: 048
     Dates: start: 201911, end: 20221211

REACTIONS (7)
  - Influenza [None]
  - Fall [None]
  - Pneumonia [None]
  - Muscle disorder [None]
  - Vomiting [None]
  - Aspiration [None]
  - Cardio-respiratory arrest [None]

NARRATIVE: CASE EVENT DATE: 20221211
